FAERS Safety Report 8784625 (Version 1)
Quarter: 2012Q4

REPORT INFORMATION
  Report Type: Spontaneous
  Country: AU (occurrence: None)
  Receive Date: 20120831
  Receipt Date: 20120831
  Transmission Date: 20130627
  Serious: Yes (Other)
  Sender: FDA-Public Use
  Company Number: AUR-APL-2012-03670

PATIENT
  Age: 67 Year
  Sex: Male

DRUGS (10)
  1. AMLODIPINE (AMLODIPINE) [Suspect]
     Indication: DRUG USE FOR UNKNOWN INDICATION
  2. CARVEDILOL [Suspect]
  3. RAMIPRIL [Suspect]
  4. SERTRALINE (SERTRALINE) (SERTRALINE) [Suspect]
  5. ATORVASTATIN CALCIUM [Suspect]
  6. PANTOPRAZOLE [Suspect]
  7. FRUSEMIDE [Suspect]
  8. PARACETAMOL [Suspect]
  9. ALLOPURINOL [Suspect]
  10. ASPIRIN [Suspect]
     Indication: DRUG USE FOR UNKNOWN INDICATION

REACTIONS (5)
  - Renal failure chronic [None]
  - Dyspnoea [None]
  - Fatigue [None]
  - Palpitations [None]
  - Oedema peripheral [None]
